FAERS Safety Report 18939694 (Version 1)
Quarter: 2021Q1

REPORT INFORMATION
  Report Type: Spontaneous
  Country: US (occurrence: US)
  Receive Date: 20210225
  Receipt Date: 20210225
  Transmission Date: 20210420
  Serious: Yes (Life-Threatening, Other)
  Sender: FDA-Public Use
  Company Number: US-TEVA-2021-US-1882906

PATIENT
  Age: 60 Year
  Sex: Female

DRUGS (4)
  1. NALOXONE [Concomitant]
     Active Substance: NALOXONE
     Indication: DRUG DEPENDENCE
     Dosage: 4 MILLIGRAM DAILY;
     Route: 065
  2. BUPRENORPHINE. [Suspect]
     Active Substance: BUPRENORPHINE
     Indication: DRUG DEPENDENCE
     Dosage: 16 MILLIGRAM DAILY;
     Route: 065
  3. METOPROLOL?TARTARATE [Concomitant]
     Indication: HYPERTENSION
     Dosage: 50 MILLIGRAM DAILY;
     Route: 065
  4. BUPRENORPHINE. [Suspect]
     Active Substance: BUPRENORPHINE
     Indication: DRUG DEPENDENCE
     Dosage: 24 MILLIGRAM DAILY;
     Route: 065

REACTIONS (2)
  - Bradycardia [Recovered/Resolved]
  - Electrocardiogram QT prolonged [Recovered/Resolved]
